FAERS Safety Report 20466450 (Version 1)
Quarter: 2022Q1

REPORT INFORMATION
  Report Type: Spontaneous
  Country: US (occurrence: US)
  Receive Date: 20220213
  Receipt Date: 20220213
  Transmission Date: 20220423
  Serious: No
  Sender: FDA-Public Use
  Company Number: US-ORGANON-O2202USA000307

PATIENT
  Age: 8 Year
  Sex: Female

DRUGS (2)
  1. ELOCON [Suspect]
     Active Substance: MOMETASONE FUROATE
     Indication: Lichen planus
     Dosage: UNK
  2. CLOBETASOL PROPIONATE E [Concomitant]
     Dosage: UNK

REACTIONS (1)
  - Product use in unapproved indication [Unknown]
